FAERS Safety Report 9147500 (Version 1)
Quarter: 2013Q1

REPORT INFORMATION
  Report Type: Spontaneous
  Country: US (occurrence: US)
  Receive Date: 20130307
  Receipt Date: 20130307
  Transmission Date: 20140127
  Serious: No
  Sender: FDA-Public Use
  Company Number: US-009507513-1303USA003234

PATIENT
  Sex: Male

DRUGS (2)
  1. AFRIN SPRAY [Suspect]
     Indication: PRODUCT USED FOR UNKNOWN INDICATION
     Dosage: 1 DF, UNKNOWN
     Route: 045
     Dates: start: 201301
  2. AFRIN SPRAY [Suspect]
     Indication: MEDICAL OBSERVATION

REACTIONS (2)
  - Vision blurred [Unknown]
  - Underdose [Unknown]
